FAERS Safety Report 9515351 (Version 1)
Quarter: 2013Q3

REPORT INFORMATION
  Report Type: Spontaneous
  Country: US (occurrence: US)
  Receive Date: 20130911
  Receipt Date: 20130911
  Transmission Date: 20140515
  Serious: Yes (Hospitalization)
  Sender: FDA-Public Use
  Company Number: US-BAYER-2013-106579

PATIENT
  Age: 38 Year
  Sex: Female

DRUGS (7)
  1. YAZ [Suspect]
  2. YASMIN [Suspect]
  3. MYCOPHENOLIC ACID [Concomitant]
     Dosage: 720 MG, BID
     Route: 048
     Dates: start: 20090103
  4. SIROLIMUS [Concomitant]
     Dosage: 3 MG PER SQ CM BID
     Route: 048
     Dates: start: 20090103
  5. NORVASC [Concomitant]
     Dosage: 5 MG,DAILY
     Route: 048
     Dates: start: 20090103
  6. PREDNISONE [Concomitant]
     Dosage: 10 MG AND 5 MG ALTERNATE DAYS
     Route: 048
     Dates: start: 20090103
  7. METOPROLOL [Concomitant]
     Dosage: 12.5 MG, BID

REACTIONS (2)
  - Ischaemic stroke [Recovering/Resolving]
  - Cerebral infarction [Recovering/Resolving]
